FAERS Safety Report 17890083 (Version 1)
Quarter: 2020Q2

REPORT INFORMATION
  Report Type: Spontaneous
  Country: JP (occurrence: JP)
  Receive Date: 20200612
  Receipt Date: 20200612
  Transmission Date: 20200714
  Serious: Yes (Other)
  Sender: FDA-Public Use
  Company Number: JP-PFIZER INC-2020222785

PATIENT

DRUGS (5)
  1. TICLOPIDINE [Concomitant]
     Active Substance: TICLOPIDINE
     Dosage: UNK
  2. ASPARA POTASSIUM [Interacting]
     Active Substance: POTASSIUM ASPARTATE
     Indication: BLOOD POTASSIUM DECREASED
     Dosage: UNK
  3. ADALAT [Concomitant]
     Active Substance: NIFEDIPINE
     Dosage: UNK
  4. AZILVA [Concomitant]
     Active Substance: AZILSARTAN KAMEDOXOMIL
     Dosage: UNK
  5. SELARA 100MG [Suspect]
     Active Substance: EPLERENONE
     Dosage: UNK
     Route: 048

REACTIONS (2)
  - Blood potassium decreased [Unknown]
  - Labelled drug-drug interaction medication error [Unknown]
